FAERS Safety Report 6342144-3 (Version None)
Quarter: 2009Q3

REPORT INFORMATION
  Report Type: 
  Country: None (occurrence: None)
  Receive Date: 20090903
  Receipt Date: 20090903
  Transmission Date: 20100115
  Serious: Yes (Life-Threatening, Other)
  Sender: FDA-Public Use
  Company Number: None

PATIENT
  Age: 61 Year
  Sex: Female
  Weight: 44.4525 kg

DRUGS (2)
  1. METOPROLOL SUCCINATE EXTENDED RELEASE [Suspect]
     Dosage: 25MG 1 PER DAY ONCE A DAY MOUTH
     Route: 048
     Dates: start: 20090815
  2. LEVAQUIN [Concomitant]

REACTIONS (4)
  - FEAR [None]
  - PRODUCT SUBSTITUTION ISSUE [None]
  - SYNCOPE [None]
  - VOMITING [None]
